FAERS Safety Report 7330008 (Version 2)
Quarter: 2013Q3

REPORT INFORMATION
  Report Type: Spontaneous
  Country: GR (occurrence: GR)
  Receive Date: 20100324
  Receipt Date: 20130717
  Transmission Date: 20140515
  Serious: Yes (Other)
  Sender: FDA-Public Use
  Company Number: GR-JNJFOC-20100305937

PATIENT
  Sex: Female

DRUGS (2)
  1. CAELYX [Suspect]
     Indication: OVARIAN CANCER
     Route: 042
  2. CARBOPLATIN [Suspect]
     Indication: OVARIAN CANCER
     Route: 065

REACTIONS (1)
  - Skin toxicity [Unknown]
